FAERS Safety Report 12141158 (Version 1)
Quarter: 2016Q1

REPORT INFORMATION
  Report Type: Spontaneous
  Country: US (occurrence: None)
  Receive Date: 20160302
  Receipt Date: 20160302
  Transmission Date: 20160526
  Serious: No
  Sender: FDA-Public Use
  Company Number: None

PATIENT
  Age: 63 Year
  Sex: Female
  Weight: 78.93 kg

DRUGS (9)
  1. PYLERA [Suspect]
     Active Substance: BISMUTH SUBCITRATE POTASSIUM\METRONIDAZOLE\TETRACYCLINE HYDROCHLORIDE
     Indication: HELICOBACTER INFECTION
     Dosage: ONE CAPSULE 140MG, ?ONE CAPSULE 125MG, ?ONE CAPSULE 125 MG?3 PILLS EACH DOSE 4 TIMES  DAILY
     Route: 048
     Dates: start: 20160210, end: 20160214
  2. ASPIRIN. [Concomitant]
     Active Substance: ASPIRIN
  3. HYDRALAZINE [Concomitant]
     Active Substance: HYDRALAZINE HYDROCHLORIDE
  4. PYLERA [Suspect]
     Active Substance: BISMUTH SUBCITRATE POTASSIUM\METRONIDAZOLE\TETRACYCLINE HYDROCHLORIDE
     Indication: BACTERIAL INFECTION
     Dosage: ONE CAPSULE 140MG, ?ONE CAPSULE 125MG, ?ONE CAPSULE 125 MG?3 PILLS EACH DOSE 4 TIMES  DAILY
     Route: 048
     Dates: start: 20160210, end: 20160214
  5. AMLODIPINE BESYLATE. [Concomitant]
     Active Substance: AMLODIPINE BESYLATE
  6. PANTOPRAZOLE [Concomitant]
     Active Substance: PANTOPRAZOLE SODIUM
  7. NEBULIZER [Concomitant]
     Active Substance: DEVICE
  8. MOBIC [Concomitant]
     Active Substance: MELOXICAM
  9. ISOSORBIDE MONONITRATE. [Concomitant]
     Active Substance: ISOSORBIDE MONONITRATE

REACTIONS (6)
  - Vomiting [None]
  - Nausea [None]
  - Headache [None]
  - Dizziness [None]
  - Decreased appetite [None]
  - Diarrhoea [None]

NARRATIVE: CASE EVENT DATE: 20160214
